FAERS Safety Report 9394708 (Version 1)
Quarter: 2013Q3

REPORT INFORMATION
  Report Type: Spontaneous
  Country: IE (occurrence: IE)
  Receive Date: 20130711
  Receipt Date: 20130711
  Transmission Date: 20140515
  Serious: Yes (Other)
  Sender: FDA-Public Use
  Company Number: IE-MPIJNJ-2013-05288

PATIENT
  Sex: 0

DRUGS (7)
  1. VELCADE [Suspect]
     Indication: PLASMA CELL MYELOMA
     Dosage: 2 MG/M2, UNK
     Route: 042
     Dates: start: 20130611
  2. VALACICLOVIR [Concomitant]
  3. MOTILIUM                           /00498201/ [Concomitant]
  4. PREDNISOLONE [Concomitant]
  5. MELPHALAN [Concomitant]
  6. LANSOPRAZOLE [Concomitant]
  7. ALLOPURINOL [Concomitant]

REACTIONS (2)
  - Atrial fibrillation [Unknown]
  - Hypotension [Unknown]
